FAERS Safety Report 4973482-4 (Version None)
Quarter: 2006Q2

REPORT INFORMATION
  Report Type: 
  Country: None (occurrence: None)
  Receive Date: 20060407
  Receipt Date: 20060325
  Transmission Date: 20061013
  Serious: Yes (Other)
  Sender: FDA-Public Use
  Company Number: 2006030186

PATIENT
  Age: 86 Year
  Sex: Female

DRUGS (8)
  1. DETROL LA [Suspect]
     Indication: BLADDER DISORDER
     Dosage: 2 MG (2 MG, 1 IN 1 D), ORAL
     Route: 048
     Dates: start: 20051201
  2. OCUVITE (ASCORBIC ACID, RETINOL, TOCOPHEROL) [Concomitant]
  3. LUTEIN (XANTHOPHYLL) [Concomitant]
  4. GLUCOSAMINE W/CHONDROITIN SULFATES (ASCORBIC ACID, CHONDROITIN SULFATE [Concomitant]
  5. PRILOSEC [Concomitant]
  6. ACTONEL [Concomitant]
  7. TYLENOL [Concomitant]
  8. ADVIL [Concomitant]

REACTIONS (1)
  - GLAUCOMA [None]
